FAERS Safety Report 11182637 (Version 2)
Quarter: 2015Q3

REPORT INFORMATION
  Report Type: Spontaneous
  Country: US (occurrence: US)
  Receive Date: 20150611
  Receipt Date: 20150914
  Transmission Date: 20151125
  Serious: No
  Sender: FDA-Public Use
  Company Number: US-ASTELLAS-2015US016537

PATIENT
  Age: 61 Year
  Sex: Male

DRUGS (2)
  1. XTANDI [Suspect]
     Active Substance: ENZALUTAMIDE
     Dosage: 160 UNK, ONCE DAILY
     Route: 048
     Dates: start: 20141008, end: 20150504
  2. XTANDI [Suspect]
     Active Substance: ENZALUTAMIDE
     Indication: HORMONE-REFRACTORY PROSTATE CANCER
     Route: 048
     Dates: start: 20140814

REACTIONS (4)
  - Thinking abnormal [Unknown]
  - Nightmare [Recovered/Resolved]
  - Bradyphrenia [Unknown]
  - Disorientation [Unknown]

NARRATIVE: CASE EVENT DATE: 20141110
